FAERS Safety Report 9229154 (Version 3)
Quarter: 2013Q2

REPORT INFORMATION
  Report Type: Spontaneous
  Country: US (occurrence: US)
  Receive Date: 20130412
  Receipt Date: 20130426
  Transmission Date: 20140414
  Serious: Yes (Hospitalization, Other)
  Sender: FDA-Public Use
  Company Number: US-ASTELLAS-2013US002537

PATIENT
  Age: 57 Year
  Sex: Male

DRUGS (8)
  1. PROGRAF [Suspect]
     Indication: RENAL AND PANCREAS TRANSPLANT
     Dosage: UNK
     Route: 048
     Dates: start: 1993
  2. PROGRAF [Suspect]
     Dosage: 2 MG, BID
     Route: 048
     Dates: start: 20050324
  3. FUROSEMIDE [Concomitant]
     Indication: PRODUCT USED FOR UNKNOWN INDICATION
     Dosage: 40 MG, BID
     Route: 048
  4. FUROSEMIDE [Concomitant]
     Dosage: 40 MG, UID/QD
     Route: 048
     Dates: start: 20121109
  5. MYFORTIC [Concomitant]
     Indication: PRODUCT USED FOR UNKNOWN INDICATION
     Dosage: 350 MG, BID
     Route: 048
  6. METOPROLOL [Concomitant]
     Indication: PRODUCT USED FOR UNKNOWN INDICATION
     Dosage: 25 MG, BID
     Route: 048
  7. WARFARIN [Concomitant]
     Indication: PRODUCT USED FOR UNKNOWN INDICATION
     Dosage: 5 MG, BID
     Route: 048
  8. WARFARIN [Concomitant]
     Dosage: 1.5 DF, UID/QD
     Route: 048

REACTIONS (25)
  - Off label use [Unknown]
  - Cardiac operation [Unknown]
  - Renal graft loss [Unknown]
  - Arteriosclerosis coronary artery [Unknown]
  - Cerebrovascular accident [Not Recovered/Not Resolved]
  - Vertigo [Unknown]
  - Peripheral vascular disorder [Unknown]
  - Hypertension [Unknown]
  - Unevaluable event [Unknown]
  - Blood parathyroid hormone increased [Unknown]
  - Plantar fasciitis [Unknown]
  - Constipation [Not Recovered/Not Resolved]
  - Abdominal distension [Not Recovered/Not Resolved]
  - Dizziness [Unknown]
  - Arthralgia [Unknown]
  - Asthenia [Unknown]
  - Vision blurred [Unknown]
  - Pain in extremity [Unknown]
  - Heart rate irregular [Unknown]
  - Mood altered [Unknown]
  - Muscular weakness [Unknown]
  - Fatigue [Unknown]
  - Weight increased [Unknown]
  - Blood creatinine increased [Unknown]
  - Blood urea increased [Unknown]
